FAERS Safety Report 4325214-0 (Version None)
Quarter: 2004Q1

REPORT INFORMATION
  Report Type: 
  Country: None (occurrence: None)
  Receive Date: 20040323
  Receipt Date: 20031219
  Transmission Date: 20041129
  Serious: No
  Sender: FDA-Public Use
  Company Number: USA031255113

PATIENT
  Age: 83 Year
  Sex: Male

DRUGS (9)
  1. CIALIS [Suspect]
     Dosage: 10 MG
     Dates: start: 20030101, end: 20030101
  2. LASIX [Concomitant]
  3. ADALAT [Concomitant]
  4. AMBIEN [Concomitant]
  5. AVAPRO [Concomitant]
  6. NEXIUM [Concomitant]
  7. METOPROLOL [Concomitant]
  8. NIASPAN [Concomitant]
  9. VITAMINS NOS [Concomitant]

REACTIONS (4)
  - ASTHENIA [None]
  - CONFUSIONAL STATE [None]
  - DISORIENTATION [None]
  - FATIGUE [None]
